FAERS Safety Report 25627998 (Version 1)
Quarter: 2025Q3

REPORT INFORMATION
  Report Type: Report from Study
  Country: US (occurrence: US)
  Receive Date: 20250731
  Receipt Date: 20250731
  Transmission Date: 20251020
  Serious: Yes (Other)
  Sender: ALEXION PHARMACEUTICALS
  Company Number: US-ASTRAZENECA-202506USA027894US

PATIENT
  Age: 43 Year
  Sex: Female

DRUGS (1)
  1. STRENSIQ [Suspect]
     Active Substance: ASFOTASE ALFA
     Indication: Phosphorus metabolism disorder
     Dosage: 80 MILLIGRAM, TIW
     Route: 065

REACTIONS (5)
  - Femoral neck fracture [Unknown]
  - Fatigue [Unknown]
  - Walking aid user [Unknown]
  - Depressed mood [Unknown]
  - Bone pain [Unknown]
